FAERS Safety Report 8417043 (Version 3)
Quarter: 2013Q1

REPORT INFORMATION
  Report Type: Report from Study
  Country: US (occurrence: MA)
  Receive Date: 20120220
  Receipt Date: 20130121
  Transmission Date: 20140127
  Serious: Yes (Hospitalization, Other)
  Sender: FDA-Public Use
  Company Number: US-ABBOTT-12P-163-0905480-00

PATIENT
  Sex: Female
  Weight: 79 kg

DRUGS (2)
  1. HUMIRA 40 MG/ 0.8 ML PRE-FILLED SYRINGE [Suspect]
     Indication: CROHN^S DISEASE
     Route: 058
     Dates: start: 2009, end: 2011
  2. HUMIRA 40 MG/ 0.8 ML PRE-FILLED SYRINGE [Suspect]
     Route: 058
     Dates: start: 201106

REACTIONS (14)
  - Abortion spontaneous [Unknown]
  - Crohn^s disease [Not Recovered/Not Resolved]
  - Haemorrhage [Unknown]
  - Fistula [Not Recovered/Not Resolved]
  - Hormone level abnormal [Unknown]
  - Weight increased [Not Recovered/Not Resolved]
  - Sleep disorder [Unknown]
  - Somnolence [Not Recovered/Not Resolved]
  - Bulimia nervosa [Unknown]
  - Vomiting [Recovered/Resolved]
  - Dehydration [Recovered/Resolved]
  - Ovarian cyst [Unknown]
  - Drug dose omission [Unknown]
  - Incorrect product storage [Unknown]
